FAERS Safety Report 5377692-6 (Version None)
Quarter: 2007Q3

REPORT INFORMATION
  Report Type: 
  Country: None (occurrence: None)
  Receive Date: 20070703
  Receipt Date: 20070626
  Transmission Date: 20080115
  Serious: No
  Sender: FDA-Public Use
  Company Number: DE-PFIZER INC-2007048949

PATIENT
  Sex: Male

DRUGS (1)
  1. VIRACEPT [Suspect]

REACTIONS (1)
  - NO ADVERSE REACTION [None]
